FAERS Safety Report 15804962 (Version 2)
Quarter: 2019Q1

REPORT INFORMATION
  Report Type: Spontaneous
  Country: US (occurrence: US)
  Receive Date: 20190110
  Receipt Date: 20190322
  Transmission Date: 20190417
  Serious: No
  Sender: FDA-Public Use
  Company Number: US-JNJFOC-20181230712

PATIENT
  Sex: Male
  Weight: 88.45 kg

DRUGS (1)
  1. TYLENOL REGULAR STRENGTH [Suspect]
     Active Substance: ACETAMINOPHEN
     Indication: BACK PAIN
     Dosage: 2 TABLETS TWICE DAILY
     Route: 048
     Dates: start: 20181214

REACTIONS (1)
  - Constipation [Not Recovered/Not Resolved]
